FAERS Safety Report 4504116-0 (Version None)
Quarter: 2004Q4

REPORT INFORMATION
  Report Type: 
  Country: None (occurrence: None)
  Receive Date: 20041118
  Receipt Date: 20041108
  Transmission Date: 20050328
  Serious: Yes (Life-Threatening, Other)
  Sender: FDA-Public Use
  Company Number: PK-ABBOTT-04P-124-0280025-00

PATIENT
  Age: 56 Year
  Sex: Female

DRUGS (5)
  1. CLARITHROMYCIN [Suspect]
     Indication: PNEUMONIA
  2. DIGOXIN [Interacting]
     Indication: MITRAL VALVE STENOSIS
  3. DIGOXIN [Interacting]
     Indication: ATRIAL FIBRILLATION
  4. WARFARIN [Interacting]
     Indication: MITRAL VALVE STENOSIS
  5. WARFARIN [Interacting]
     Indication: ATRIAL FIBRILLATION

REACTIONS (11)
  - ASTHENIA [None]
  - ATRIOVENTRICULAR BLOCK COMPLETE [None]
  - DIZZINESS [None]
  - DRUG INTERACTION [None]
  - DYSPNOEA [None]
  - HEART RATE DECREASED [None]
  - INTERNATIONAL NORMALISED RATIO INCREASED [None]
  - NODAL RHYTHM [None]
  - THERAPEUTIC AGENT TOXICITY [None]
  - VENTRICULAR EXTRASYSTOLES [None]
  - VOMITING [None]
